FAERS Safety Report 8853002 (Version 1)
Quarter: 2012Q4

REPORT INFORMATION
  Report Type: 
  Country: ES (occurrence: ES)
  Receive Date: 20121022
  Receipt Date: 20121022
  Transmission Date: 20130627
  Serious: Yes (Life-Threatening)
  Sender: FDA-Public Use
  Company Number: ES-B.I. PHARMACEUTICALS,INC./RIDGEFIELD-2012-ES-00407ES

PATIENT
  Age: 70 Year
  Sex: Male
  Weight: 92 kg

DRUGS (1)
  1. PRADAXA [Suspect]
     Indication: ATRIAL FIBRILLATION
     Dosage: 300 mg
     Route: 048
     Dates: start: 20120301

REACTIONS (3)
  - Transient ischaemic attack [Recovered/Resolved]
  - Gait disturbance [Recovered/Resolved]
  - Drug ineffective [Recovered/Resolved]
